FAERS Safety Report 15171492 (Version 1)
Quarter: 2018Q3

REPORT INFORMATION
  Report Type: Spontaneous
  Country: ZA (occurrence: ZA)
  Receive Date: 20180720
  Receipt Date: 20180720
  Transmission Date: 20181010
  Serious: Yes (Death, Other)
  Sender: FDA-Public Use
  Company Number: ZA-PFIZER INC-2018290614

PATIENT
  Age: 84 Year
  Sex: Male

DRUGS (10)
  1. FERRIMED [Suspect]
     Active Substance: CYANOCOBALAMIN\IRON POLYMALTOSE\PYRIDOXINE
  2. DIAGLUCIDE [Suspect]
     Active Substance: GLICLAZIDE
     Dosage: 60 MG, UNK
  3. LOMANOR [Suspect]
     Active Substance: AMLODIPINE BESYLATE
     Dosage: 5 MG, UNK
  4. LASIX [Suspect]
     Active Substance: FUROSEMIDE
     Dosage: 40 MG, UNK
  5. SPIRACTIN (SPIRONOLACTONE) [Suspect]
     Active Substance: SPIRONOLACTONE
     Dosage: 25 MG, UNK
  6. MONICOR [Suspect]
     Active Substance: ISOSORBIDE MONONITRATE
     Dosage: 60 MG, UNK
  7. DIAPHAGE [Suspect]
     Active Substance: METFORMIN HYDROCHLORIDE
     Dosage: 500 MG, UNK
  8. ADCO ZETOMAX CO [Suspect]
     Active Substance: HYDROCHLOROTHIAZIDE\LISINOPRIL
     Dosage: 20 MG, UNK
  9. CLOPIWIN [Suspect]
     Active Substance: CLOPIDOGREL BISULFATE
     Dosage: 75 MG, UNK
  10. ASPAVOR [Suspect]
     Active Substance: ATORVASTATIN
     Dosage: 20 MG, UNK

REACTIONS (1)
  - Death [Fatal]
